FAERS Safety Report 6855073-3 (Version None)
Quarter: 2010Q3

REPORT INFORMATION
  Report Type: 
  Country: None (occurrence: None)
  Receive Date: 20100717
  Receipt Date: 20081125
  Transmission Date: 20110219
  Serious: Yes (Other)
  Sender: FDA-Public Use
  Company Number: US-PFIZER INC-2007108640

PATIENT
  Age: 28 Year
  Sex: Female
  Weight: 66.667 kg

DRUGS (4)
  1. CHANTIX [Suspect]
     Indication: SMOKING CESSATION THERAPY
     Dosage: UNK
     Route: 048
     Dates: start: 20070726, end: 20070729
  2. PAXIL CR [Concomitant]
  3. ORTHO-CEPT [Concomitant]
  4. CENTRUM [Concomitant]

REACTIONS (1)
  - DRUG HYPERSENSITIVITY [None]
